FAERS Safety Report 10969785 (Version 1)
Quarter: 2015Q1

REPORT INFORMATION
  Report Type: Spontaneous
  Country: US (occurrence: None)
  Receive Date: 20150330
  Receipt Date: 20150330
  Transmission Date: 20150721
  Serious: Yes (Other)
  Sender: FDA-Public Use
  Company Number: None

PATIENT
  Age: 52 Year
  Sex: Male
  Weight: 120.66 kg

DRUGS (2)
  1. ARMOUR THYROID [Concomitant]
     Active Substance: THYROID, PORCINE\THYROID, UNSPECIFIED
     Dosage: 1 QD ORAL
     Route: 048
     Dates: start: 20140924, end: 20150324
  2. XARELTO [Suspect]
     Active Substance: RIVAROXABAN

REACTIONS (1)
  - Epistaxis [None]

NARRATIVE: CASE EVENT DATE: 20150324
